FAERS Safety Report 13413899 (Version 1)
Quarter: 2017Q2

REPORT INFORMATION
  Report Type: Spontaneous
  Country: US (occurrence: US)
  Receive Date: 20170407
  Receipt Date: 20170407
  Transmission Date: 20170830
  Serious: Yes (Life-Threatening, Hospitalization, Other)
  Sender: FDA-Public Use
  Company Number: None

PATIENT
  Age: 21 Year
  Sex: Female
  Weight: 99 kg

DRUGS (1)
  1. LAMOTRIGINE EXTENDED RELEASE [Suspect]
     Active Substance: LAMOTRIGINE
     Indication: SEIZURE
     Route: 048
     Dates: start: 20170303, end: 20170329

REACTIONS (3)
  - Rash [None]
  - Oropharyngeal pain [None]
  - Stevens-Johnson syndrome [None]

NARRATIVE: CASE EVENT DATE: 20170329
